FAERS Safety Report 4374324-0 (Version None)
Quarter: 2004Q2

REPORT INFORMATION
  Report Type: 
  Country: None (occurrence: None)
  Receive Date: 20040608
  Receipt Date: 20040608
  Transmission Date: 20050107
  Serious: Yes (Hospitalization)
  Sender: FDA-Public Use
  Company Number: None

PATIENT
  Age: 53 Year
  Sex: Male
  Weight: 114.8 kg

DRUGS (6)
  1. LEVOFLOXACIN [Suspect]
  2. METOPROLOL TARTRATE [Concomitant]
  3. . [Concomitant]
  4. GUAIFENSIN [Concomitant]
  5. HYDROCHLOROTHIAZIDE [Concomitant]
  6. HC 1%/NEOMYCIN 3.5 MG/POLYMYXIN [Concomitant]

REACTIONS (3)
  - DIZZINESS [None]
  - FATIGUE [None]
  - HYPERGLYCAEMIA [None]
